FAERS Safety Report 4764752-3 (Version None)
Quarter: 2005Q3

REPORT INFORMATION
  Report Type: 
  Country: None (occurrence: None)
  Receive Date: 20050909
  Receipt Date: 20050901
  Transmission Date: 20060218
  Serious: Yes (Hospitalization)
  Sender: FDA-Public Use
  Company Number: GB-MERCK-0509GBR00013

PATIENT
  Age: 72 Year
  Sex: Female

DRUGS (11)
  1. VIOXX [Suspect]
     Route: 048
     Dates: start: 20040729, end: 20041004
  2. TRAMADOL HYDROCHLORIDE [Concomitant]
     Route: 065
  3. ATORVASTATIN CALCIUM [Concomitant]
     Route: 065
  4. MESALAMINE [Concomitant]
     Route: 065
  5. GLICLAZIDE [Concomitant]
     Route: 065
  6. PREDNISOLONE [Concomitant]
     Route: 065
  7. ATENOLOL [Concomitant]
     Route: 065
  8. BENDROFLUMETHIAZIDE [Concomitant]
     Route: 065
  9. CODEINE PHOSPHATE AND ACETAMINOPHEN [Concomitant]
     Route: 065
  10. LANSOPRAZOLE [Concomitant]
     Route: 065
  11. RANITIDINE [Concomitant]
     Route: 065

REACTIONS (1)
  - PULMONARY EMBOLISM [None]
